FAERS Safety Report 7669625-4 (Version None)
Quarter: 2011Q3

REPORT INFORMATION
  Report Type: 
  Country: None (occurrence: None)
  Receive Date: 20110808
  Receipt Date: 20110728
  Transmission Date: 20111222
  Serious: Yes (Hospitalization)
  Sender: FDA-Public Use
  Company Number: PHHY2011CH67731

PATIENT
  Age: 25 Year
  Sex: Female

DRUGS (2)
  1. CLOZAPINE [Suspect]
     Indication: PSYCHOTIC DISORDER
     Route: 048
  2. CLOZAPINE [Suspect]
     Dosage: 3.1 G
     Route: 048
     Dates: start: 20110326, end: 20110326

REACTIONS (6)
  - TACHYCARDIA [None]
  - CONVULSION [None]
  - SALIVARY HYPERSECRETION [None]
  - ELECTROCARDIOGRAM QT PROLONGED [None]
  - ALTERED STATE OF CONSCIOUSNESS [None]
  - SUICIDE ATTEMPT [None]
